FAERS Safety Report 5456478-8 (Version None)
Quarter: 2007Q3

REPORT INFORMATION
  Report Type: 
  Country: None (occurrence: None)
  Receive Date: 20070918
  Receipt Date: 20070914
  Transmission Date: 20080115
  Serious: Yes (Death, Other)
  Sender: FDA-Public Use
  Company Number: BE-BRISTOL-MYERS SQUIBB COMPANY-13906920

PATIENT
  Age: 63 Year
  Sex: Male
  Weight: 75 kg

DRUGS (16)
  1. SPRYCEL [Suspect]
     Indication: BLAST CRISIS IN MYELOGENOUS LEUKAEMIA
     Dates: start: 20070416, end: 20070820
  2. DUOVENT [Concomitant]
  3. XANAX [Concomitant]
  4. ZOLPIDEM TARTRATE [Concomitant]
  5. ALLOPURINOL [Concomitant]
  6. ZOVIRAX [Concomitant]
  7. BACTRIM [Concomitant]
  8. OMEPRAZOLE [Concomitant]
  9. MEDROL [Concomitant]
  10. MOVICOL [Concomitant]
  11. MERONEM [Concomitant]
  12. VANCOMYCIN HCL [Concomitant]
  13. CANCIDAS [Concomitant]
  14. ABELCET [Concomitant]
  15. TRAZOLAN [Concomitant]
  16. GLURENORM [Concomitant]

REACTIONS (3)
  - BRONCHOPULMONARY ASPERGILLOSIS [None]
  - PANCYTOPENIA [None]
  - RESPIRATORY FAILURE [None]
